FAERS Safety Report 10008407 (Version 1)
Quarter: 2014Q1

REPORT INFORMATION
  Report Type: Spontaneous
  Country: DK (occurrence: DK)
  Receive Date: 20140313
  Receipt Date: 20140313
  Transmission Date: 20141002
  Serious: Yes (Death)
  Sender: FDA-Public Use
  Company Number: DK-ENDO PHARMACEUTICALS INC.-FORT20140067

PATIENT
  Age: 64 Year
  Sex: Male

DRUGS (2)
  1. FORTESTA [Suspect]
     Indication: ANDROGEN DEFICIENCY
     Route: 065
     Dates: start: 20130918, end: 201310
  2. FORTESTA [Suspect]
     Route: 065
     Dates: start: 20131021

REACTIONS (6)
  - Aortic dissection [None]
  - Acne [Unknown]
  - Aggression [Unknown]
  - Palpitations [Unknown]
  - Fatigue [Unknown]
  - Nausea [Unknown]
